FAERS Safety Report 20760982 (Version 5)
Quarter: 2022Q2

REPORT INFORMATION
  Report Type: Spontaneous
  Country: FR (occurrence: FR)
  Receive Date: 20220428
  Receipt Date: 20220610
  Transmission Date: 20220720
  Serious: Yes (Hospitalization, Other)
  Sender: FDA-Public Use
  Company Number: FR-PFIZER INC-2018178025

PATIENT
  Age: 54 Year
  Sex: Male
  Weight: 55 kg

DRUGS (6)
  1. NIVOLUMAB [Suspect]
     Active Substance: NIVOLUMAB
     Indication: Metastatic renal cell carcinoma
     Dosage: UNK
     Route: 042
     Dates: start: 20170224
  2. SUTENT [Suspect]
     Active Substance: SUNITINIB MALATE
     Indication: Metastatic renal cell carcinoma
     Dosage: 37.5 MG, CYCLIC (2 WEEKS ON / 1 WEEK OFF)
     Route: 065
     Dates: start: 20160905, end: 20170205
  3. CABOZANTINIB [Suspect]
     Active Substance: CABOZANTINIB
     Indication: Renal cancer metastatic
     Dosage: UNK
     Route: 048
     Dates: start: 20170816
  4. ATARAX [Concomitant]
     Active Substance: HYDROXYZINE HYDROCHLORIDE
     Dosage: 25, UNK
     Route: 048
  5. ESOMEPRAZOLE [Concomitant]
     Active Substance: ESOMEPRAZOLE
     Indication: Product used for unknown indication
     Dosage: 20, UNK
     Route: 048
  6. IRBESARTAN [Concomitant]
     Active Substance: IRBESARTAN
     Indication: Hypertension
     Dosage: 150 MG, UNK
     Dates: start: 20160905

REACTIONS (25)
  - Hiccups [Recovered/Resolved]
  - Renal failure [Recovered/Resolved]
  - Rectal haemorrhage [Unknown]
  - Haemorrhage [Unknown]
  - Anorectal discomfort [Not Recovered/Not Resolved]
  - Xeroderma [Recovered/Resolved]
  - Nail dystrophy [Recovered/Resolved]
  - Lacrimation increased [Unknown]
  - Abdominal discomfort [Recovered/Resolved]
  - Eyelid oedema [Unknown]
  - Musculoskeletal pain [Not Recovered/Not Resolved]
  - Eyelid oedema [Recovered/Resolved]
  - Dry mouth [Unknown]
  - Back pain [Recovered/Resolved]
  - Gingival bleeding [Unknown]
  - Dysgeusia [Unknown]
  - Arthralgia [Unknown]
  - Hypertension [Unknown]
  - Headache [Not Recovered/Not Resolved]
  - Palmar-plantar erythrodysaesthesia syndrome [Recovered/Resolved]
  - Mucosal inflammation [Unknown]
  - Asthenia [Recovered/Resolved]
  - Asthenia [Not Recovered/Not Resolved]
  - Asthenia [Unknown]
  - Arthralgia [Unknown]

NARRATIVE: CASE EVENT DATE: 20160901
